FAERS Safety Report 8085045-5 (Version None)
Quarter: 2012Q1

REPORT INFORMATION
  Report Type: 
  Country: None (occurrence: None)
  Receive Date: 20120128
  Receipt Date: 20110314
  Transmission Date: 20120608
  Serious: No
  Sender: FDA-Public Use
  Company Number: US-ABBOTT-11P-163-0711216-00

PATIENT
  Age: 58 Year
  Sex: Female

DRUGS (9)
  1. OXYCODONE HCL [Concomitant]
     Indication: BACK PAIN
  2. PROZAC [Concomitant]
     Indication: DEPRESSION
  3. NITROGLYCERIN [Concomitant]
     Indication: CHEST PAIN
     Route: 060
  4. OXYCODONE HCL [Concomitant]
     Indication: FIBROMYALGIA
  5. FLEXERIL [Concomitant]
     Indication: MUSCLE SPASMS
  6. TAGAMET [Concomitant]
     Indication: GASTROOESOPHAGEAL REFLUX DISEASE
  7. TAGAMET [Concomitant]
     Indication: REFLUX GASTRITIS
  8. HUMIRA [Suspect]
     Indication: CROHN'S DISEASE
     Dates: start: 20110201
  9. SYNTHROID [Concomitant]
     Indication: HYPOTHYROIDISM

REACTIONS (1)
  - INJECTION SITE PAIN [None]
